FAERS Safety Report 6108561-1 (Version None)
Quarter: 2009Q1

REPORT INFORMATION
  Report Type: 
  Country: None (occurrence: None)
  Receive Date: 20090303
  Receipt Date: 20090225
  Transmission Date: 20090719
  Serious: Yes (Death)
  Sender: FDA-Public Use
  Company Number: 2009JP001071

PATIENT
  Age: 58 Year
  Sex: Female

DRUGS (7)
  1. PROGRAF [Suspect]
     Indication: BONE MARROW TRANSPLANT
  2. FLUDARABINE (FLUDARABINE) FORMULATION UNKNOWN [Concomitant]
  3. BUSULFAN (BUSULFAN) FORMULATION UNKNOWN [Concomitant]
  4. METHOTREXATE FORMULATION UNKNOWN [Concomitant]
  5. DEFIBROTIDE (DEFIBROTIDE) INJECTION [Concomitant]
  6. UDCA (URSODEOXYCHOLIC ACID) [Concomitant]
  7. STRONGER NEO MINOPHAGEN C (AMINOACETIC ACID, GLYCYRRHIZIC ACID, CYSTEI [Concomitant]

REACTIONS (1)
  - STAPHYLOCOCCAL SEPSIS [None]
